FAERS Safety Report 11989092 (Version 2)
Quarter: 2020Q4

REPORT INFORMATION
  Report Type: Spontaneous
  Country: US (occurrence: US)
  Receive Date: 20160202
  Receipt Date: 20201013
  Transmission Date: 20210113
  Serious: Yes (Other)
  Sender: FDA-Public Use
  Company Number: US-PFIZER INC-2016057099

PATIENT
  Age: 57 Year
  Sex: Female
  Weight: 65.32 kg

DRUGS (4)
  1. TRAZODONE [Concomitant]
     Active Substance: TRAZODONE HYDROCHLORIDE
     Indication: DEPRESSION
  2. ZOLOFT [Suspect]
     Active Substance: SERTRALINE HYDROCHLORIDE
     Indication: DEPRESSION
  3. ZOLOFT [Suspect]
     Active Substance: SERTRALINE HYDROCHLORIDE
     Indication: ANXIETY
     Dosage: 100 MG, DAILY
     Route: 048
     Dates: start: 2006
  4. TRAZODONE [Concomitant]
     Active Substance: TRAZODONE HYDROCHLORIDE
     Indication: ANXIETY
     Dosage: ^275^, ONCE A DAY, PILL
     Route: 048
     Dates: start: 1992

REACTIONS (5)
  - Panic reaction [Unknown]
  - Ankle fracture [Not Recovered/Not Resolved]
  - Ligament sprain [Not Recovered/Not Resolved]
  - Skin laceration [Unknown]
  - Bone disorder [Unknown]

NARRATIVE: CASE EVENT DATE: 20160122
